FAERS Safety Report 4549921-X (Version None)
Quarter: 2004Q4

REPORT INFORMATION
  Report Type: 
  Country: None (occurrence: None)
  Receive Date: 20041230
  Receipt Date: 20040510
  Transmission Date: 20050328
  Serious: Yes (Hospitalization)
  Sender: FDA-Public Use
  Company Number: 04-05-0672

PATIENT
  Age: 47 Year
  Sex: Male

DRUGS (2)
  1. CLOZAPINE [Suspect]
     Indication: ATTENTION DEFICIT/HYPERACTIVITY DISORDER
     Dosage: 300-500 MG QD ORAL
     Route: 048
     Dates: start: 20020201
  2. CLOZAPINE [Suspect]
     Indication: BIPOLAR DISORDER
     Dosage: 300-500 MG QD ORAL
     Route: 048
     Dates: start: 20020201

REACTIONS (2)
  - PRE-EXISTING DISEASE [None]
  - PSYCHIATRIC SYMPTOM [None]
